FAERS Safety Report 9315846 (Version 1)
Quarter: 2013Q2

REPORT INFORMATION
  Report Type: Spontaneous
  Country: US (occurrence: US)
  Receive Date: 20130529
  Receipt Date: 20130529
  Transmission Date: 20140414
  Serious: Yes (Hospitalization)
  Sender: FDA-Public Use
  Company Number: US-BRISTOL-MYERS SQUIBB COMPANY-18915520

PATIENT
  Sex: Male

DRUGS (1)
  1. ABILIFY [Suspect]
     Dosage: INCREASED TO 10MG DAILY

REACTIONS (8)
  - Cerebrovascular accident [Unknown]
  - Vision blurred [Unknown]
  - Dyskinesia [Unknown]
  - Dystonia [Unknown]
  - Tongue biting [Unknown]
  - Musculoskeletal stiffness [Unknown]
  - Eye disorder [Unknown]
  - Product quality issue [Unknown]
